FAERS Safety Report 14968871 (Version 1)
Quarter: 2018Q2

REPORT INFORMATION
  Report Type: Spontaneous
  Country: US (occurrence: US)
  Receive Date: 20180604
  Receipt Date: 20180604
  Transmission Date: 20180711
  Serious: Yes (Other)
  Sender: FDA-Public Use
  Company Number: US-COOPERSURGICAL, INC.-US-2018CPS032053

PATIENT

DRUGS (1)
  1. PARAGARD T 380A [Suspect]
     Active Substance: COPPER
     Indication: CONTRACEPTION
     Dosage: UNK
     Route: 015
     Dates: start: 200808, end: 20180516

REACTIONS (4)
  - Foreign body in reproductive tract [Recovered/Resolved]
  - Device breakage [Unknown]
  - Complication of device removal [Recovered/Resolved]
  - Device expulsion [Unknown]

NARRATIVE: CASE EVENT DATE: 20180516
